FAERS Safety Report 21342200 (Version 3)
Quarter: 2022Q4

REPORT INFORMATION
  Report Type: Other
  Country: CA (occurrence: None)
  Receive Date: 20220916
  Receipt Date: 20221102
  Transmission Date: 20230112
  Serious: Yes (Other)
  Sender: FDA-Public Use
  Company Number: CA-ROCHE-2965648

PATIENT
  Sex: Male
  Weight: 87 kg

DRUGS (16)
  1. ACTEMRA [Suspect]
     Active Substance: TOCILIZUMAB
     Indication: Rheumatoid arthritis
     Route: 042
     Dates: start: 20110217, end: 20120111
  2. ACTEMRA [Suspect]
     Active Substance: TOCILIZUMAB
     Route: 042
     Dates: start: 20120209, end: 20121122
  3. ACTEMRA [Suspect]
     Active Substance: TOCILIZUMAB
     Route: 042
     Dates: start: 20130108, end: 20141009
  4. ACTEMRA [Suspect]
     Active Substance: TOCILIZUMAB
     Route: 042
     Dates: start: 20141106, end: 20190228
  5. ACTEMRA [Suspect]
     Active Substance: TOCILIZUMAB
     Route: 042
     Dates: start: 20191209, end: 20201203
  6. ACTEMRA [Suspect]
     Active Substance: TOCILIZUMAB
     Dosage: ADDITIONAL BATCH/LOT FROM 19-MAY-2021: B3038B18 (OCT2022); B2086B13 (NOV-2021)
     Route: 042
     Dates: start: 20210323
  7. ACTEMRA [Suspect]
     Active Substance: TOCILIZUMAB
     Route: 042
  8. ALLOPURINOL [Concomitant]
     Active Substance: ALLOPURINOL
     Route: 048
  9. DIOVAN [Concomitant]
     Active Substance: VALSARTAN
  10. DOXEPIN [Concomitant]
     Active Substance: DOXEPIN
     Route: 048
  11. IMOVANE [Concomitant]
     Active Substance: ZOPICLONE
  12. PREDNISONE [Concomitant]
     Active Substance: PREDNISONE
     Route: 048
  13. URSODIOL [Concomitant]
     Active Substance: URSODIOL
     Route: 048
  14. SYNTHROID [Concomitant]
     Active Substance: LEVOTHYROXINE SODIUM
     Route: 048
  15. ZOLPIDEM TARTRATE [Concomitant]
     Active Substance: ZOLPIDEM TARTRATE
     Route: 048
  16. VALSARTAN [Concomitant]
     Active Substance: VALSARTAN

REACTIONS (5)
  - Penis disorder [Recovered/Resolved]
  - Urinary tract infection [Recovered/Resolved]
  - Weight increased [Unknown]
  - Dysuria [Recovered/Resolved]
  - Pollakiuria [Recovered/Resolved]

NARRATIVE: CASE EVENT DATE: 20220101
